FAERS Safety Report 20379873 (Version 1)
Quarter: 2022Q1

REPORT INFORMATION
  Report Type: Other
  Country: CN (occurrence: CN)
  Receive Date: 20220126
  Receipt Date: 20220126
  Transmission Date: 20220423
  Serious: Yes (Other)
  Sender: FDA-Public Use
  Company Number: CN-GE HEALTHCARE-2022CSU000473

PATIENT

DRUGS (2)
  1. VISIPAQUE [Suspect]
     Active Substance: IODIXANOL
     Indication: Computerised tomogram abdomen
     Dosage: 80 ML, SINGLE
     Route: 042
     Dates: start: 20211223, end: 20211223
  2. VISIPAQUE [Suspect]
     Active Substance: IODIXANOL
     Indication: Abdominal pain

REACTIONS (4)
  - Dysphonia [Recovering/Resolving]
  - Dyspnoea [Recovering/Resolving]
  - Blood pressure increased [Recovering/Resolving]
  - Product administered to patient of inappropriate age [Recovering/Resolving]

NARRATIVE: CASE EVENT DATE: 20211223
